FAERS Safety Report 10246321 (Version 4)
Quarter: 2014Q4

REPORT INFORMATION
  Report Type: Spontaneous
  Country: US (occurrence: US)
  Receive Date: 20140619
  Receipt Date: 20141010
  Transmission Date: 20150528
  Serious: No
  Sender: FDA-Public Use
  Company Number: US-PFIZER INC-2014157115

PATIENT
  Sex: Female

DRUGS (1)
  1. NICOTROL [Suspect]
     Active Substance: NICOTINE
     Dosage: ONE CARTRIDGE 16 TIMES A DAY AS NEEDED

REACTIONS (2)
  - Product quality issue [Unknown]
  - Drug ineffective [Unknown]
